FAERS Safety Report 6936066-4 (Version None)
Quarter: 2010Q3

REPORT INFORMATION
  Report Type: 
  Country: None (occurrence: None)
  Receive Date: 20100823
  Receipt Date: 20100817
  Transmission Date: 20110219
  Serious: Yes (Hospitalization)
  Sender: FDA-Public Use
  Company Number: FR-SANOFI-AVENTIS-2010SA048649

PATIENT
  Age: 75 Year
  Sex: Male

DRUGS (11)
  1. ASPEGIC 1000 [Suspect]
     Indication: MYOCARDIAL INFARCTION
     Route: 042
     Dates: start: 20100725, end: 20100725
  2. RISORDAN [Suspect]
     Indication: MYOCARDIAL INFARCTION
     Route: 042
     Dates: start: 20100725, end: 20100725
  3. PLAVIX [Suspect]
     Indication: MYOCARDIAL INFARCTION
     Route: 048
     Dates: start: 20100725, end: 20100726
  4. AGRASTAT [Suspect]
     Indication: MYOCARDIAL INFARCTION
     Route: 042
     Dates: start: 20100725, end: 20100726
  5. HEPARIN [Suspect]
     Indication: MYOCARDIAL INFARCTION
     Route: 042
     Dates: start: 20100725, end: 20100728
  6. KERLONE [Concomitant]
     Indication: PRODUCT USED FOR UNKNOWN INDICATION
     Route: 048
  7. LOXEN [Concomitant]
     Indication: PRODUCT USED FOR UNKNOWN INDICATION
     Route: 048
  8. METFORMIN [Concomitant]
     Indication: PRODUCT USED FOR UNKNOWN INDICATION
  9. NOVONORM [Concomitant]
     Indication: PRODUCT USED FOR UNKNOWN INDICATION
  10. KARDEGIC [Concomitant]
     Indication: PRODUCT USED FOR UNKNOWN INDICATION
     Route: 048
  11. EZETIMIBE/SIMVASTATIN [Concomitant]
     Indication: PRODUCT USED FOR UNKNOWN INDICATION
     Route: 048

REACTIONS (2)
  - NEUTROPENIA [None]
  - THROMBOCYTOPENIA [None]
